FAERS Safety Report 23745058 (Version 1)
Quarter: 2024Q2

REPORT INFORMATION
  Report Type: Spontaneous
  Country: US (occurrence: US)
  Receive Date: 20240415
  Receipt Date: 20240415
  Transmission Date: 20240716
  Serious: Yes (Hospitalization, Other)
  Sender: FDA-Public Use
  Company Number: US-BRISTOL-MYERS SQUIBB COMPANY-2024-054297

PATIENT
  Age: 74 Year
  Sex: Female

DRUGS (1)
  1. LENALIDOMIDE [Suspect]
     Active Substance: LENALIDOMIDE
     Indication: Plasma cell myeloma
     Dosage: TAKE 1 CAPSULE (15 MG) BY MOUTH ONCE DAILY. TAKE ON DAYS 1-21 OF A 28 DAY CYCLE
     Route: 048

REACTIONS (3)
  - Product communication issue [Unknown]
  - Hip fracture [Recovered/Resolved]
  - Therapy interrupted [Unknown]
